FAERS Safety Report 8300083-2 (Version None)
Quarter: 2012Q2

REPORT INFORMATION
  Report Type: 
  Country: None (occurrence: None)
  Receive Date: 20120420
  Receipt Date: 20120416
  Transmission Date: 20120825
  Serious: No
  Sender: FDA-Public Use
  Company Number: US-PFIZER INC-2012086203

PATIENT
  Sex: Female

DRUGS (4)
  1. LASIX [Concomitant]
     Dosage: UNK
  2. SITAGLIPTIN AND METFORMIN HYDROCHLORIDE [Concomitant]
     Dosage: UNK
  3. LIPITOR [Suspect]
     Indication: TYPE 2 DIABETES MELLITUS
     Dosage: UNK
     Dates: start: 20110601
  4. LANTUS [Suspect]
     Indication: TYPE 2 DIABETES MELLITUS
     Dosage: 11 UNITS, DAILY
     Route: 058
     Dates: start: 20110601, end: 20111213

REACTIONS (3)
  - RASH [None]
  - OEDEMA PERIPHERAL [None]
  - MUSCULOSKELETAL STIFFNESS [None]
